FAERS Safety Report 8977651 (Version 1)
Quarter: 2012Q4

REPORT INFORMATION
  Report Type: 
  Country: IN (occurrence: IN)
  Receive Date: 20121220
  Receipt Date: 20121220
  Transmission Date: 20130627
  Serious: Yes (Hospitalization)
  Sender: FDA-Public Use
  Company Number: IN-VIIV HEALTHCARE LIMITED-B0853553A

PATIENT
  Age: 40 Year
  Sex: Male

DRUGS (7)
  1. LAMIVUDINE-HIV [Suspect]
     Indication: HIV INFECTION
     Route: 065
  2. STAVUDINE [Suspect]
     Indication: HIV INFECTION
     Route: 065
  3. NEVIRAPINE [Suspect]
     Indication: HIV INFECTION
     Route: 065
  4. TENOFOVIR [Suspect]
     Indication: PRODUCT USED FOR UNKNOWN INDICATION
     Route: 065
  5. EMTRICITABINE [Suspect]
     Indication: PRODUCT USED FOR UNKNOWN INDICATION
     Route: 065
  6. HOMEOPATHIC TREATMENT [Concomitant]
     Indication: HIV INFECTION
  7. CO-TRIMOXAZOLE TRIMETHOPRIM, SULFAMETHOXAZOLE [Concomitant]
     Indication: PROPHYLAXIS

REACTIONS (13)
  - Immune reconstitution inflammatory syndrome [Recovering/Resolving]
  - Meningitis cryptococcal [Unknown]
  - Toxoplasmosis [Unknown]
  - Cytomegalovirus chorioretinitis [Unknown]
  - Headache [Recovered/Resolved]
  - Vomiting [Unknown]
  - Pyrexia [Unknown]
  - Nuchal rigidity [Unknown]
  - Meningitis [Unknown]
  - Abdominal pain upper [Unknown]
  - Visual acuity reduced [Unknown]
  - Hydrocephalus [Unknown]
  - Cerebral ventricle dilatation [Unknown]
